FAERS Safety Report 5929196-7 (Version None)
Quarter: 2008Q4

REPORT INFORMATION
  Report Type: 
  Country: None (occurrence: None)
  Receive Date: 20081024
  Receipt Date: 20081016
  Transmission Date: 20090506
  Serious: Yes (Other)
  Sender: FDA-Public Use
  Company Number: BR-ASTRAZENECA-2008UW23076

PATIENT
  Age: 47 Year
  Sex: Female
  Weight: 58 kg

DRUGS (2)
  1. NEXIUM [Suspect]
     Indication: REFLUX OESOPHAGITIS
     Route: 048
     Dates: start: 20081001, end: 20081002
  2. ATENOLOL + CLORTALIDONA [Concomitant]
     Indication: HYPERTENSION
     Route: 048

REACTIONS (2)
  - EYE SWELLING [None]
  - PRURITUS GENERALISED [None]
